FAERS Safety Report 5959853-8 (Version None)
Quarter: 2008Q4

REPORT INFORMATION
  Report Type: 
  Country: None (occurrence: None)
  Receive Date: 20081120
  Receipt Date: 20081114
  Transmission Date: 20090506
  Serious: Yes (Hospitalization)
  Sender: FDA-Public Use
  Company Number: B0546935A

PATIENT
  Age: 77 Year
  Sex: Female

DRUGS (5)
  1. ALIFLUS [Suspect]
     Indication: BRONCHOSPASM
     Route: 055
     Dates: start: 20081029, end: 20081029
  2. LEVOTHYROXINE SODIUM [Concomitant]
     Dates: start: 19900101
  3. LANSOPRAZOLE [Concomitant]
     Dates: start: 20070101
  4. ATENOLOLO + CLORTALIDONE [Concomitant]
     Dates: start: 20070101
  5. LORMETAZEPAM [Concomitant]
     Dates: start: 19680101

REACTIONS (1)
  - PALATAL OEDEMA [None]
